FAERS Safety Report 7517272-7 (Version None)
Quarter: 2011Q2

REPORT INFORMATION
  Report Type: 
  Country: None (occurrence: None)
  Receive Date: 20110601
  Receipt Date: 20110525
  Transmission Date: 20111010
  Serious: Yes (Hospitalization, Other)
  Sender: FDA-Public Use
  Company Number: US-ELI_LILLY_AND_COMPANY-US201002003762

PATIENT
  Sex: Male
  Weight: 117.1 kg

DRUGS (5)
  1. BYETTA [Suspect]
     Indication: DIABETES MELLITUS
     Dosage: 10 UG, BID
     Route: 058
     Dates: start: 20070101, end: 20091016
  2. LOPID [Concomitant]
     Indication: HYPERTRIGLYCERIDAEMIA
     Dosage: 600 MG, BID
  3. GLIPIZIDE [Concomitant]
     Indication: DIABETES MELLITUS
     Dosage: 5 MG, QD
  4. SIMVASTATIN [Concomitant]
     Indication: HYPERTRIGLYCERIDAEMIA
     Dosage: 80 MG, QD
  5. METFORMIN HCL [Concomitant]
     Indication: DIABETES MELLITUS
     Dosage: 1000 MG, BID

REACTIONS (2)
  - PANCREATITIS [None]
  - GASTROINTESTINAL DISORDER [None]
